FAERS Safety Report 5049012-8 (Version None)
Quarter: 2006Q3

REPORT INFORMATION
  Report Type: 
  Country: None (occurrence: None)
  Receive Date: 20060712
  Receipt Date: 20060630
  Transmission Date: 20061208
  Serious: Yes (Hospitalization)
  Sender: FDA-Public Use
  Company Number: FR-BRISTOL-MYERS SQUIBB COMPANY-13435961

PATIENT
  Age: 76 Year
  Sex: Female

DRUGS (7)
  1. METFORMIN HYDROCHLORIDE [Suspect]
     Indication: DIABETES MELLITUS
     Route: 048
     Dates: end: 20060429
  2. LAMISIL [Suspect]
     Dates: start: 20060310, end: 20060311
  3. TAREG [Suspect]
     Indication: HYPERTENSION
     Route: 048
     Dates: end: 20060429
  4. DIAMICRON [Suspect]
     Indication: DIABETES MELLITUS
     Route: 048
     Dates: end: 20060429
  5. KERLONE [Suspect]
     Indication: HYPERTENSION
     Route: 048
     Dates: end: 20060429
  6. ASPIRIN [Concomitant]
     Route: 048
  7. LANTUS [Concomitant]
     Indication: DIABETES MELLITUS
     Route: 058
     Dates: start: 20060405

REACTIONS (4)
  - DERMATITIS EXFOLIATIVE [None]
  - DRUG ERUPTION [None]
  - EOSINOPHILIA [None]
  - ERYTHEMA MULTIFORME [None]
